FAERS Safety Report 22658406 (Version 1)
Quarter: 2023Q2

REPORT INFORMATION
  Report Type: Spontaneous
  Country: US (occurrence: US)
  Receive Date: 20230630
  Receipt Date: 20230630
  Transmission Date: 20230721
  Serious: No
  Sender: FDA-Public Use
  Company Number: US-Calliditas-2023CAL00809

PATIENT
  Age: 44 Year
  Sex: Male

DRUGS (1)
  1. TARPEYO [Suspect]
     Active Substance: BUDESONIDE
     Indication: IgA nephropathy
     Dosage: 16 MG (4 MG CAPSULES) ONCE DAILY
     Route: 048
     Dates: start: 20230602

REACTIONS (5)
  - Muscle spasms [Unknown]
  - Abdominal pain upper [Unknown]
  - Dyspepsia [Unknown]
  - Muscle spasms [Unknown]
  - Prescribed underdose [Unknown]
